FAERS Safety Report 6669032-7 (Version None)
Quarter: 2010Q2

REPORT INFORMATION
  Report Type: 
  Country: None (occurrence: None)
  Receive Date: 20100406
  Receipt Date: 20100331
  Transmission Date: 20101027
  Serious: Yes (Life-Threatening, Hospitalization)
  Sender: FDA-Public Use
  Company Number: JP-BAYER-200812848BYL

PATIENT
  Age: 82 Year
  Sex: Male
  Weight: 43 kg

DRUGS (12)
  1. NEXAVAR [Suspect]
     Indication: RENAL CELL CARCINOMA
     Dosage: TOTAL DAILY DOSE: 800 MG  UNIT DOSE: 200 MG
     Route: 048
     Dates: start: 20080911, end: 20080924
  2. NEXAVAR [Suspect]
     Dosage: TOTAL DAILY DOSE: 400 MG  UNIT DOSE: 200 MG
     Route: 048
     Dates: start: 20081007, end: 20081106
  3. NEXAVAR [Suspect]
     Dosage: TOTAL DAILY DOSE: 400 MG  UNIT DOSE: 200 MG
     Route: 048
     Dates: start: 20081117, end: 20090130
  4. FAMOTIDINE [Concomitant]
     Indication: GASTRITIS PROPHYLAXIS
     Route: 048
     Dates: start: 20080827
  5. LASIX [Concomitant]
     Route: 048
     Dates: start: 20081024
  6. LASIX [Concomitant]
     Route: 048
     Dates: start: 20080827, end: 20081023
  7. HIRUDOID [Concomitant]
     Indication: PROPHYLAXIS
     Route: 061
     Dates: start: 20080911
  8. GABALON [Concomitant]
     Indication: HICCUPS
     Route: 048
     Dates: start: 20081104
  9. VITAMEDIN [Concomitant]
     Route: 042
     Dates: start: 20081104, end: 20081110
  10. CYTOTEC [Concomitant]
     Indication: GASTRITIS PROPHYLAXIS
     Route: 048
     Dates: start: 20081222
  11. ZOMETA [Concomitant]
     Route: 041
     Dates: start: 20090203, end: 20090203
  12. ZOMETA [Concomitant]
     Route: 041
     Dates: start: 20090302, end: 20090302

REACTIONS (11)
  - BLOOD AMYLASE INCREASED [None]
  - DIARRHOEA [None]
  - DISSEMINATED INTRAVASCULAR COAGULATION [None]
  - HEPATIC FUNCTION ABNORMAL [None]
  - HYPERTENSION [None]
  - IMPAIRED HEALING [None]
  - MALAISE [None]
  - NAUSEA [None]
  - PAIN IN EXTREMITY [None]
  - PALMAR-PLANTAR ERYTHRODYSAESTHESIA SYNDROME [None]
  - PYREXIA [None]
